FAERS Safety Report 8921874 (Version 1)
Quarter: 2012Q4

REPORT INFORMATION
  Report Type: 
  Country: US (occurrence: US)
  Receive Date: 20121121
  Receipt Date: 20121121
  Transmission Date: 20130627
  Serious: No
  Sender: FDA-Public Use
  Company Number: US-PFIZER INC-2012289999

PATIENT
  Age: 70 Year
  Sex: Female
  Weight: 77.1 kg

DRUGS (5)
  1. DETROL LA [Suspect]
     Indication: OVERACTIVE BLADDER
     Dosage: 4 mg, daily
  2. LIPITOR [Suspect]
     Indication: BLOOD CHOLESTEROL ABNORMAL
     Dosage: 20 mg, daily
  3. LIPITOR [Suspect]
     Indication: TRIGLYCERIDES ABNORMAL
  4. ACTOS [Concomitant]
     Indication: DIABETES
     Dosage: 5 mg, daily
  5. PRANDIN [Concomitant]
     Indication: DIABETES
     Dosage: 2 mg, 3x/day

REACTIONS (1)
  - Drug ineffective [Unknown]
